FAERS Safety Report 17539579 (Version 3)
Quarter: 2020Q1

REPORT INFORMATION
  Report Type: Spontaneous
  Country: US (occurrence: US)
  Receive Date: 20200313
  Receipt Date: 20200324
  Transmission Date: 20200409
  Serious: No
  Sender: FDA-Public Use
  Company Number: US-PFIZER INC-2020110722

PATIENT
  Age: 63 Year
  Sex: Female
  Weight: 79.38 kg

DRUGS (1)
  1. PREMARIN [Suspect]
     Active Substance: ESTROGENS, CONJUGATED
     Dosage: UNK, 2X/WEEK
     Route: 067

REACTIONS (4)
  - Expired product administered [Unknown]
  - Burning sensation [Unknown]
  - Vulvovaginal discomfort [Unknown]
  - Rash [Unknown]
